FAERS Safety Report 19984833 (Version 16)
Quarter: 2025Q1

REPORT INFORMATION
  Report Type: Spontaneous
  Country: US (occurrence: US)
  Receive Date: 20211022
  Receipt Date: 20250326
  Transmission Date: 20250408
  Serious: No
  Sender: PFIZER
  Company Number: US-PFIZER INC-202101212024

PATIENT
  Age: 64 Year
  Sex: Female

DRUGS (2)
  1. BOSULIF [Suspect]
     Active Substance: BOSUTINIB MONOHYDRATE
     Indication: Philadelphia positive chronic myeloid leukaemia
     Route: 048
     Dates: start: 2021
  2. BOSULIF [Suspect]
     Active Substance: BOSUTINIB MONOHYDRATE
     Dosage: 100 MG, 1X/DAY (TAKE 1 TABLET DAILY)
     Route: 048
     Dates: start: 202112

REACTIONS (3)
  - Dyspnoea [Unknown]
  - Product packaging issue [Unknown]
  - Poor quality product administered [Unknown]
